FAERS Safety Report 7850180-0 (Version None)
Quarter: 2011Q4

REPORT INFORMATION
  Report Type: 
  Country: None (occurrence: None)
  Receive Date: 20111026
  Receipt Date: 20111018
  Transmission Date: 20120403
  Serious: Yes (Hospitalization, Other)
  Sender: FDA-Public Use
  Company Number: JP-JNJFOC-20111009621

PATIENT
  Sex: Male
  Weight: 33 kg

DRUGS (23)
  1. PREDNISOLONE [Concomitant]
     Indication: PAIN
     Route: 048
  2. SPIRIVA [Concomitant]
     Indication: PRODUCT USED FOR UNKNOWN INDICATION
     Route: 055
  3. PYRINAZIN [Concomitant]
     Indication: PAIN
     Route: 048
     Dates: start: 20100717
  4. FENTANYL-100 [Suspect]
     Route: 062
     Dates: start: 20110812, end: 20110813
  5. FLIVAS [Concomitant]
     Indication: PRODUCT USED FOR UNKNOWN INDICATION
     Route: 048
  6. SILECE [Concomitant]
     Indication: PRODUCT USED FOR UNKNOWN INDICATION
     Route: 048
  7. MAGNESIUM SULFATE [Concomitant]
     Indication: PROPHYLAXIS
     Route: 048
     Dates: start: 20100725, end: 20100831
  8. CYTOTEC [Concomitant]
     Indication: PRODUCT USED FOR UNKNOWN INDICATION
     Route: 048
  9. LUDIOMIL [Concomitant]
     Indication: PROPHYLAXIS
     Route: 048
  10. PROGRAF [Concomitant]
     Indication: PAIN
     Route: 048
  11. BREDININ [Concomitant]
     Indication: PAIN
     Route: 048
  12. MUCODYNE [Concomitant]
     Indication: PRODUCT USED FOR UNKNOWN INDICATION
     Route: 048
  13. ALLOPURINOL [Concomitant]
     Indication: PRODUCT USED FOR UNKNOWN INDICATION
     Route: 048
  14. FENTANYL-100 [Suspect]
     Indication: PAIN
     Route: 062
     Dates: start: 20110813
  15. OMEPRAZOLE [Concomitant]
     Indication: PRODUCT USED FOR UNKNOWN INDICATION
     Route: 048
  16. LENDORMIN [Concomitant]
     Indication: PRODUCT USED FOR UNKNOWN INDICATION
     Route: 048
  17. FENTANYL-100 [Suspect]
     Route: 062
     Dates: start: 20110725, end: 20110731
  18. DIFLUCAN [Concomitant]
     Indication: PROPHYLAXIS
     Route: 048
  19. PAXIL [Concomitant]
     Indication: PRODUCT USED FOR UNKNOWN INDICATION
     Route: 048
  20. PURSENNID [Concomitant]
     Indication: PROPHYLAXIS
     Route: 048
     Dates: start: 20100725, end: 20100818
  21. DOGMATYL [Concomitant]
     Indication: PRODUCT USED FOR UNKNOWN INDICATION
     Route: 048
  22. PROCHLORPERAZINE [Concomitant]
     Indication: PROPHYLAXIS
     Route: 048
     Dates: start: 20100725, end: 20100811
  23. FENTANYL-100 [Suspect]
     Route: 062
     Dates: start: 20110731, end: 20110812

REACTIONS (1)
  - DELIRIUM [None]
